FAERS Safety Report 23290255 (Version 1)
Quarter: 2023Q4

REPORT INFORMATION
  Report Type: Spontaneous
  Country: US (occurrence: US)
  Receive Date: 20231213
  Receipt Date: 20231213
  Transmission Date: 20240109
  Serious: Yes (Other)
  Sender: FDA-Public Use
  Company Number: US-ABBVIE-5521347

PATIENT
  Sex: Female

DRUGS (5)
  1. RESTASIS [Suspect]
     Active Substance: CYCLOSPORINE
     Indication: Dry eye
     Route: 065
     Dates: start: 202311
  2. RESTASIS [Suspect]
     Active Substance: CYCLOSPORINE
     Indication: Eye pain
  3. RESTASIS [Suspect]
     Active Substance: CYCLOSPORINE
     Indication: Conjunctivitis
  4. RESTASIS [Suspect]
     Active Substance: CYCLOSPORINE
     Indication: Corneal abrasion
  5. REFRESH TEARS [Suspect]
     Active Substance: CARBOXYMETHYLCELLULOSE SODIUM
     Indication: Eye pain
     Route: 047
     Dates: start: 202311

REACTIONS (5)
  - Cataract [Not Recovered/Not Resolved]
  - Conjunctivitis [Not Recovered/Not Resolved]
  - Eye irritation [Not Recovered/Not Resolved]
  - Corneal abrasion [Not Recovered/Not Resolved]
  - Eye pain [Not Recovered/Not Resolved]

NARRATIVE: CASE EVENT DATE: 20230101
